FAERS Safety Report 19243014 (Version 3)
Quarter: 2021Q4

REPORT INFORMATION
  Report Type: Report from Study
  Country: US (occurrence: US)
  Receive Date: 20210511
  Receipt Date: 20211013
  Transmission Date: 20220303
  Serious: No
  Sender: FDA-Public Use
  Company Number: NVSC2021US098023

PATIENT
  Age: 61 Year
  Sex: Male

DRUGS (1)
  1. ENTRESTO [Suspect]
     Active Substance: SACUBITRIL\VALSARTAN
     Indication: Cardiac failure
     Dosage: 1 DF, BID (97/103 MG)
     Route: 048
     Dates: start: 20200407

REACTIONS (4)
  - Therapeutic response unexpected [Unknown]
  - Weight decreased [Recovering/Resolving]
  - Hypercholesterolaemia [Unknown]
  - Myalgia [Unknown]

NARRATIVE: CASE EVENT DATE: 20210501
